FAERS Safety Report 5187728-3 (Version None)
Quarter: 2006Q4

REPORT INFORMATION
  Report Type: 
  Country: None (occurrence: None)
  Receive Date: 20061221
  Receipt Date: 20061213
  Transmission Date: 20070319
  Serious: Yes (Hospitalization, Other)
  Sender: FDA-Public Use
  Company Number: US-KINGPHARMUSA00001-K200601581

PATIENT
  Age: 69 Year

DRUGS (13)
  1. SEPTRA [Suspect]
     Indication: URINARY TRACT INFECTION
     Dosage: 200 MG, UNK
     Route: 048
     Dates: start: 20061030, end: 20061031
  2. ALLOPURINOL [Concomitant]
  3. ATORVASTATIN CALCIUM [Concomitant]
  4. BECLOMETHASONE DIPROPIONATE [Concomitant]
  5. CALCICHEW D3 [Concomitant]
  6. FLUTICASONE PROPIONATE [Concomitant]
  7. OMEPRAZOLE [Concomitant]
  8. SALBUTAMOL SULFATE [Concomitant]
  9. SALMETEROL XINAFOATE [Concomitant]
  10. SOTALOL HYDROCHLORIDE [Concomitant]
  11. ALVERINE CITRATE [Concomitant]
  12. WARFARIN SODIUM [Concomitant]
  13. VITAMIN B-COMPLEX WITH VITAMIN C [Concomitant]
     Dosage: ONE CAPSULE, QD

REACTIONS (3)
  - CHILLS [None]
  - PYELONEPHRITIS [None]
  - SEPSIS [None]
